FAERS Safety Report 4981015-1 (Version None)
Quarter: 2006Q2

REPORT INFORMATION
  Report Type: 
  Country: None (occurrence: None)
  Receive Date: 20060418
  Receipt Date: 20060330
  Transmission Date: 20061013
  Serious: Yes (Other)
  Sender: FDA-Public Use
  Company Number: US200602005526

PATIENT
  Age: 47 Year
  Sex: Female
  Weight: 75.5 kg

DRUGS (3)
  1. SOMATROPIN (SOMATROPIN) VIAL [Suspect]
     Indication: GROWTH HORMONE DEFICIENCY
     Dosage: 0.3 MG, DAILY (1/D), SUBCUTANEOUS
     Route: 058
     Dates: start: 20050131, end: 20060227
  2. GLUCOPHAGE [Concomitant]
  3. SYNTHROID [Concomitant]

REACTIONS (1)
  - HYPERTENSION [None]
